FAERS Safety Report 6626147-7 (Version None)
Quarter: 2010Q1

REPORT INFORMATION
  Report Type: 
  Country: None (occurrence: None)
  Receive Date: 20100310
  Receipt Date: 20100226
  Transmission Date: 20100710
  Serious: Yes (Hospitalization, Other)
  Sender: FDA-Public Use
  Company Number: PHHY2010JP06051

PATIENT
  Sex: Male
  Weight: 70 kg

DRUGS (6)
  1. DIOVAN [Suspect]
     Dosage: 80 MG, QD
     Route: 048
     Dates: start: 20071027
  2. PRAVASTATIN SODIUM [Concomitant]
     Dosage: 10 MG, UNK
     Route: 048
     Dates: start: 20071027
  3. PLAVIX [Concomitant]
     Dosage: 75 MG, UNK
     Route: 048
     Dates: start: 20071027
  4. GLIBENCLAMIDE [Concomitant]
     Dosage: 5 MG, UNK
     Route: 048
     Dates: start: 20071027
  5. METFORMIN HYDROCHLORIDE [Concomitant]
     Dosage: 500 MG, UNK
     Route: 048
     Dates: start: 20071027
  6. ACTOS [Concomitant]
     Dosage: 30 MG, UNK
     Route: 048
     Dates: start: 20071027

REACTIONS (6)
  - BLOOD PRESSURE INCREASED [None]
  - CEREBRAL INFARCTION [None]
  - CONDITION AGGRAVATED [None]
  - DIABETES MELLITUS [None]
  - DYSARTHRIA [None]
  - DYSLIPIDAEMIA [None]
